FAERS Safety Report 7989485-1 (Version None)
Quarter: 2011Q4

REPORT INFORMATION
  Report Type: 
  Country: None (occurrence: None)
  Receive Date: 20111215
  Receipt Date: 20111129
  Transmission Date: 20120403
  Serious: Yes (Hospitalization)
  Sender: FDA-Public Use
  Company Number: 2011AP002902

PATIENT
  Age: 25 Year
  Sex: Female

DRUGS (6)
  1. TRAMADOL HYDROCHLORIDE [Suspect]
     Indication: PRODUCT USED FOR UNKNOWN INDICATION
  2. LEVETIRACETAM [Suspect]
     Indication: PRODUCT USED FOR UNKNOWN INDICATION
  3. ACETAMINOPHEN WDIPHENHYDRAMINE HYDROCHLORIDE [Suspect]
  4. OLANZAPINE [Suspect]
  5. LORAZEPAM [Suspect]
  6. TRAZODONE HCL [Suspect]

REACTIONS (6)
  - SOMNOLENCE [None]
  - TACHYCARDIA [None]
  - VOMITING [None]
  - MULTIPLE DRUG OVERDOSE [None]
  - TOXICITY TO VARIOUS AGENTS [None]
  - NAUSEA [None]
